FAERS Safety Report 16569881 (Version 1)
Quarter: 2019Q3

REPORT INFORMATION
  Report Type: Spontaneous
  Country: US (occurrence: US)
  Receive Date: 20190531
  Receipt Date: 20190531
  Transmission Date: 20191004
  Serious: Yes (Other)
  Sender: FDA-Public Use
  Company Number: None

PATIENT
  Age: 34 Year
  Sex: Male
  Weight: 73.94 kg

DRUGS (2)
  1. BUPRENORPHINE/NALOXONE [Suspect]
     Active Substance: BUPRENORPHINE\NALOXONE
     Indication: DRUG ABUSE
     Dosage: ?          OTHER DOSE:8MG/2MG TABS;?
     Route: 048
     Dates: start: 20190417, end: 20190430
  2. BUPRENORPHINE/NALOXONE [Suspect]
     Active Substance: BUPRENORPHINE\NALOXONE
     Indication: DRUG ABUSE
     Dosage: ?          OTHER DOSE:8MG/2MG TABS;?
     Route: 048
     Dates: start: 20190501, end: 20190531

REACTIONS (4)
  - Weight decreased [None]
  - Nausea [None]
  - Vomiting [None]
  - Hyperhidrosis [None]

NARRATIVE: CASE EVENT DATE: 20190529
